FAERS Safety Report 8376968-8 (Version None)
Quarter: 2012Q2

REPORT INFORMATION
  Report Type: 
  Country: None (occurrence: None)
  Receive Date: 20120522
  Receipt Date: 20120515
  Transmission Date: 20120825
  Serious: Yes (Other)
  Sender: FDA-Public Use
  Company Number: PHHY2011US02259

PATIENT
  Sex: Female
  Weight: 109 kg

DRUGS (2)
  1. IBUPROFEN [Concomitant]
  2. EXJADE [Suspect]
     Indication: IRON OVERLOAD
     Dosage: 2000 MG, QD
     Route: 048
     Dates: start: 20101218

REACTIONS (13)
  - UPPER RESPIRATORY TRACT INFECTION [None]
  - ARTHRALGIA [None]
  - MYALGIA [None]
  - UPPER RESPIRATORY TRACT CONGESTION [None]
  - PRODUCTIVE COUGH [None]
  - FATIGUE [None]
  - NASOPHARYNGITIS [None]
  - PAROXYSMAL NOCTURNAL HAEMOGLOBINURIA [None]
  - GASTRIC ULCER [None]
  - COUGH [None]
  - NAUSEA [None]
  - PRURITUS GENERALISED [None]
  - DIARRHOEA [None]
